FAERS Safety Report 23563844 (Version 1)
Quarter: 2024Q1

REPORT INFORMATION
  Report Type: Spontaneous
  Country: FR (occurrence: FR)
  Receive Date: 20240226
  Receipt Date: 20240226
  Transmission Date: 20240410
  Serious: Yes (Hospitalization)
  Sender: FDA-Public Use
  Company Number: None

PATIENT
  Age: 15 Year
  Sex: Female
  Weight: 46.5 kg

DRUGS (17)
  1. DIAZEPAM [Suspect]
     Active Substance: DIAZEPAM
     Indication: Anxiolytic therapy
     Route: 065
     Dates: start: 20230511, end: 20230604
  2. VANCOMYCIN [Concomitant]
     Active Substance: VANCOMYCIN
     Indication: Product used for unknown indication
     Dosage: VANCOMYCIN VIATRIS
     Route: 065
  3. FLUTICASONE FUROATE\VILANTEROL TRIFENATATE [Concomitant]
     Active Substance: FLUTICASONE FUROATE\VILANTEROL TRIFENATATE
     Indication: Product used for unknown indication
     Dosage: 184 MICROGRAMS/22 MICROGRAMS, POWDER FOR INHALATION, IN SINGLE-DOSE CONTAINER
     Route: 065
  4. IOBITRIDOL [Suspect]
     Active Substance: IOBITRIDOL
     Indication: Computerised tomogram
     Dosage: TIME INTERVAL: TOTAL: 350 (350 MG IODINE/ML)
     Route: 042
     Dates: start: 20230517, end: 20230517
  5. IOBITRIDOL [Suspect]
     Active Substance: IOBITRIDOL
     Indication: Computerised tomogram
     Dosage: TIME INTERVAL: TOTAL: 350 (350 MG IODINE/ML)
     Route: 042
     Dates: start: 20230518, end: 20230518
  6. PIPERACILLIN SODIUM\TAZOBACTAM SODIUM [Suspect]
     Active Substance: PIPERACILLIN SODIUM\TAZOBACTAM SODIUM
     Indication: Inflammation
     Dosage: 4 G/500 MG, PIPERACILLIN TAZOBACTAM PANPHARMA
     Route: 042
     Dates: start: 20230517, end: 20230615
  7. IOMERON [Suspect]
     Active Substance: IOMEPROL
     Indication: Computerised tomogram
     Dosage: TIME INTERVAL: TOTAL: 400 (400 MG IODINE/ML)
     Route: 042
     Dates: start: 20230522, end: 20230522
  8. IOMERON [Suspect]
     Active Substance: IOMEPROL
     Indication: Computerised tomogram
     Dosage: TIME INTERVAL: TOTAL: 400 (400 MG IODINE/ML)
     Route: 042
     Dates: start: 20230526, end: 20230526
  9. IOMERON [Suspect]
     Active Substance: IOMEPROL
     Indication: Computerised tomogram
     Dosage: TIME INTERVAL: TOTAL: 400 (400 MG IODINE/ML)
     Route: 042
     Dates: start: 20230528, end: 20230528
  10. IOMERON [Suspect]
     Active Substance: IOMEPROL
     Indication: Computerised tomogram
     Dosage: TIME INTERVAL: TOTAL: 400 (400 MG IODINE/ML)
     Route: 042
     Dates: start: 20230514, end: 20230514
  11. IOMERON [Suspect]
     Active Substance: IOMEPROL
     Indication: Computerised tomogram
     Dosage: TIME INTERVAL: TOTAL: 400 (400 MG IODINE/ML)
     Route: 042
     Dates: start: 20230607, end: 20230607
  12. IOMERON [Suspect]
     Active Substance: IOMEPROL
     Indication: Computerised tomogram
     Dosage: TIME INTERVAL: TOTAL: 400 (400 MG IODINE/ML)
     Route: 042
     Dates: start: 20230508, end: 20230508
  13. OMEPRAZOLE [Suspect]
     Active Substance: OMEPRAZOLE
     Indication: Gastrooesophageal reflux disease
     Route: 042
     Dates: start: 20230518, end: 20230625
  14. FLUCONAZOLE [Concomitant]
     Active Substance: FLUCONAZOLE
     Indication: Infection
     Dosage: FLUCONAZOLE KABI
     Route: 042
     Dates: start: 20230530, end: 20230621
  15. IOMERON [Suspect]
     Active Substance: IOMEPROL
     Indication: Computerised tomogram
     Dosage: 150 (150 MG IODINE/ML), TOTAL
     Route: 042
     Dates: start: 20230609, end: 20230609
  16. LINEZOLID [Suspect]
     Active Substance: LINEZOLID
     Indication: Staphylococcal infection
     Route: 065
     Dates: start: 20230606, end: 20230617
  17. ACETAMINOPHEN [Concomitant]
     Active Substance: ACETAMINOPHEN
     Indication: Product used for unknown indication
     Dosage: PARACETAMOL B BRAUN
     Route: 065

REACTIONS (1)
  - Drug reaction with eosinophilia and systemic symptoms [Recovered/Resolved]

NARRATIVE: CASE EVENT DATE: 20230612
